FAERS Safety Report 17072447 (Version 1)
Quarter: 2019Q4

REPORT INFORMATION
  Report Type: Spontaneous
  Country: US (occurrence: US)
  Receive Date: 20191125
  Receipt Date: 20191125
  Transmission Date: 20200122
  Serious: No
  Sender: FDA-Public Use
  Company Number: US-009507513-1911USA004249

PATIENT
  Age: 28 Year
  Sex: Female
  Weight: 129.25 kg

DRUGS (1)
  1. NEXPLANON [Suspect]
     Active Substance: ETONOGESTREL
     Indication: CONTRACEPTION
     Dosage: 1 IMPLANT EVERY 3 YEARS
     Route: 059
     Dates: start: 20191011

REACTIONS (3)
  - Implant site swelling [Not Recovered/Not Resolved]
  - Implant site infection [Not Recovered/Not Resolved]
  - Implant site pustules [Not Recovered/Not Resolved]

NARRATIVE: CASE EVENT DATE: 20191018
